FAERS Safety Report 24041920 (Version 2)
Quarter: 2024Q4

REPORT INFORMATION
  Report Type: Spontaneous
  Country: JP (occurrence: JP)
  Receive Date: 20240702
  Receipt Date: 20241001
  Transmission Date: 20250115
  Serious: Yes (Other)
  Sender: BRISTOL MYERS SQUIBB
  Company Number: JP-ONO-2024JP013810

PATIENT

DRUGS (6)
  1. OPDIVO [Suspect]
     Active Substance: NIVOLUMAB
     Indication: Product used for unknown indication
     Route: 041
     Dates: start: 202403
  2. OPDIVO [Suspect]
     Active Substance: NIVOLUMAB
     Route: 041
  3. GIMERACIL\OTERACIL\TEGAFUR [Concomitant]
     Active Substance: GIMERACIL\OTERACIL POTASSIUM\TEGAFUR
     Indication: Product used for unknown indication
     Dates: start: 202403
  4. GIMERACIL\OTERACIL\TEGAFUR [Concomitant]
     Active Substance: GIMERACIL\OTERACIL POTASSIUM\TEGAFUR
  5. OXALIPLATIN [Concomitant]
     Active Substance: OXALIPLATIN
     Indication: Product used for unknown indication
     Dates: start: 202403
  6. OXALIPLATIN [Concomitant]
     Active Substance: OXALIPLATIN

REACTIONS (2)
  - Interstitial lung disease [Recovered/Resolved]
  - Fracture [Unknown]
